FAERS Safety Report 6511538-5 (Version None)
Quarter: 2009Q4

REPORT INFORMATION
  Report Type: 
  Country: None (occurrence: None)
  Receive Date: 20091222
  Receipt Date: 20090417
  Transmission Date: 20100525
  Serious: No
  Sender: FDA-Public Use
  Company Number: US-ASTRAZENECA-2009UW09720

PATIENT
  Sex: Female

DRUGS (2)
  1. CRESTOR [Suspect]
     Dosage: 40 MG
     Route: 048
  2. CRESTOR [Suspect]
     Dosage: 20 MG
     Route: 048

REACTIONS (1)
  - MUSCLE SPASMS [None]
